FAERS Safety Report 17010855 (Version 1)
Quarter: 2019Q4

REPORT INFORMATION
  Report Type: Spontaneous
  Country: US (occurrence: US)
  Receive Date: 20191108
  Receipt Date: 20191108
  Transmission Date: 20200122
  Serious: No
  Sender: FDA-Public Use
  Company Number: US-BAUSCH-BL-2019-058892

PATIENT
  Sex: Female

DRUGS (1)
  1. LUMIFY [Suspect]
     Active Substance: BRIMONIDINE TARTRATE
     Indication: OCULAR HYPERAEMIA
     Dosage: DAILY
     Route: 065

REACTIONS (8)
  - Eye pruritus [Unknown]
  - Abnormal sensation in eye [Unknown]
  - Eye swelling [Unknown]
  - Vision blurred [Unknown]
  - Ocular hyperaemia [Unknown]
  - Eye disorder [Unknown]
  - Condition aggravated [Unknown]
  - Eye pain [Unknown]
